FAERS Safety Report 15854940 (Version 2)
Quarter: 2019Q2

REPORT INFORMATION
  Report Type: Spontaneous
  Country: CA (occurrence: CA)
  Receive Date: 20190122
  Receipt Date: 20190509
  Transmission Date: 20190711
  Serious: Yes (Other)
  Sender: FDA-Public Use
  Company Number: CA-PFIZER INC-2018374491

PATIENT
  Age: 36 Year
  Sex: Male

DRUGS (2)
  1. SUTENT [Suspect]
     Active Substance: SUNITINIB MALATE
     Dosage: 37.5 MG, DAILY
     Route: 048
     Dates: start: 20190110, end: 20190429
  2. SUTENT [Suspect]
     Active Substance: SUNITINIB MALATE
     Indication: EXTRASKELETAL MYXOID CHONDROSARCOMA
     Dosage: 37.5 MG, DAILY
     Route: 048
     Dates: start: 20180915

REACTIONS (3)
  - Abscess limb [Unknown]
  - Neoplasm progression [Unknown]
  - Product use in unapproved indication [Unknown]
